FAERS Safety Report 8101538-6 (Version None)
Quarter: 2012Q1

REPORT INFORMATION
  Report Type: 
  Country: None (occurrence: None)
  Receive Date: 20120129
  Receipt Date: 20110918
  Transmission Date: 20120608
  Serious: No
  Sender: FDA-Public Use
  Company Number: US-ABBOTT-11P-163-0855736-00

PATIENT
  Age: 62 Year
  Sex: Male

DRUGS (6)
  1. ASACOL [Concomitant]
     Indication: PRODUCT USED FOR UNKNOWN INDICATION
  2. ZETIA [Concomitant]
     Indication: PRODUCT USED FOR UNKNOWN INDICATION
  3. HUMIRA [Suspect]
     Indication: CROHN'S DISEASE
     Dates: start: 20110716
  4. TOPROL-XL [Concomitant]
     Indication: PRODUCT USED FOR UNKNOWN INDICATION
  5. LIPITOR [Concomitant]
     Indication: PRODUCT USED FOR UNKNOWN INDICATION
  6. ASPIRIN [Concomitant]
     Indication: PRODUCT USED FOR UNKNOWN INDICATION

REACTIONS (11)
  - SCRATCH [None]
  - ERYTHEMA [None]
  - SINUS HEADACHE [None]
  - WOUND [None]
  - NASAL CONGESTION [None]
  - SWELLING [None]
  - IMPAIRED HEALING [None]
  - ARTHROPOD BITE [None]
  - INFECTION [None]
  - EAR CONGESTION [None]
  - SINUSITIS [None]
